FAERS Safety Report 15075098 (Version 1)
Quarter: 2018Q2

REPORT INFORMATION
  Report Type: Spontaneous
  Country: US (occurrence: US)
  Receive Date: 20180627
  Receipt Date: 20180627
  Transmission Date: 20180711
  Serious: Yes (Other)
  Sender: FDA-Public Use
  Company Number: US-SAOL THERAPEUTICS-2017SAO03408

PATIENT
  Sex: Male

DRUGS (6)
  1. LIORESAL [Suspect]
     Active Substance: BACLOFEN
     Dosage: UNK
     Dates: start: 201206
  2. OXYCODONE [Concomitant]
     Active Substance: OXYCODONE
  3. AMPHETAMINE SULFATE. [Concomitant]
     Active Substance: AMPHETAMINE SULFATE
  4. LIORESAL [Suspect]
     Active Substance: BACLOFEN
     Indication: MUSCLE SPASTICITY
     Dosage: 146.67 ?G, \DAY
     Route: 037
  5. ADERRALL [Concomitant]
  6. LIORESAL [Suspect]
     Active Substance: BACLOFEN
     Indication: MULTIPLE SCLEROSIS
     Dosage: 150 ?G, \DAY
     Route: 037

REACTIONS (4)
  - Influenza [Unknown]
  - Device malfunction [Recovered/Resolved]
  - Muscle spasms [Recovering/Resolving]
  - Back pain [Unknown]
